FAERS Safety Report 8956350 (Version 1)
Quarter: 2012Q4

REPORT INFORMATION
  Report Type: 
  Country: US (occurrence: US)
  Receive Date: 20121210
  Receipt Date: 20121210
  Transmission Date: 20130627
  Serious: No
  Sender: FDA-Public Use
  Company Number: US-PFIZER INC-2012309682

PATIENT
  Age: 37 Year
  Sex: Female
  Weight: 72.56 kg

DRUGS (3)
  1. ADVIL [Suspect]
     Indication: HEADACHE
     Dosage: 400 mg, as needed
     Route: 048
  2. ADVIL [Suspect]
     Indication: MUSCLE ACHE
  3. AMOXICILLIN [Suspect]
     Indication: SINUS INFECTION
     Dosage: UNK
     Dates: start: 20121202, end: 20121206

REACTIONS (4)
  - Hypersensitivity [Recovering/Resolving]
  - Oedema peripheral [Recovering/Resolving]
  - Paraesthesia oral [Recovering/Resolving]
  - Arthralgia [Recovering/Resolving]
